FAERS Safety Report 18143610 (Version 4)
Quarter: 2021Q1

REPORT INFORMATION
  Report Type: Spontaneous
  Country: US (occurrence: US)
  Receive Date: 20200812
  Receipt Date: 20210210
  Transmission Date: 20210419
  Serious: Yes (Other)
  Sender: FDA-Public Use
  Company Number: US-ASTRAZENECA-2020SE99191

PATIENT
  Age: 23121 Day
  Sex: Female
  Weight: 68 kg

DRUGS (1)
  1. SYMLIN [Suspect]
     Active Substance: PRAMLINTIDE ACETATE
     Indication: TYPE 1 DIABETES MELLITUS
     Dosage: 30 UG,PRESCRIBED FOR THREE TIMES A DAY WITH MEALS BUT SHE ONLY TAKES IT ONCE A DAY BECAUSE SHE DO...
     Route: 058
     Dates: start: 20200803

REACTIONS (3)
  - Blood glucose increased [Recovering/Resolving]
  - Drug ineffective [Unknown]
  - Intentional product misuse [Unknown]

NARRATIVE: CASE EVENT DATE: 20200803
